FAERS Safety Report 6145296-3 (Version None)
Quarter: 2009Q2

REPORT INFORMATION
  Report Type: 
  Country: None (occurrence: None)
  Receive Date: 20090406
  Receipt Date: 20090327
  Transmission Date: 20091009
  Serious: Yes (Death)
  Sender: FDA-Public Use
  Company Number: CA-ABBOTT-09P-028-0564954-00

PATIENT
  Sex: Male

DRUGS (7)
  1. LUPRON DEPOT [Suspect]
     Indication: PROSTATE CANCER
     Dosage: THREE MONTH DEPOT
     Route: 050
     Dates: start: 20060704, end: 20090109
  2. CASODEX [Concomitant]
     Indication: DRUG USE FOR UNKNOWN INDICATION
  3. FOSAMAX [Concomitant]
     Indication: DRUG USE FOR UNKNOWN INDICATION
  4. EXCELLON [Concomitant]
     Indication: DRUG USE FOR UNKNOWN INDICATION
  5. PARIET [Concomitant]
     Indication: DRUG USE FOR UNKNOWN INDICATION
  6. TYLENOL (CAPLET) [Concomitant]
     Indication: DRUG USE FOR UNKNOWN INDICATION
  7. ASPIRIN EXTRA STRENGTH [Concomitant]
     Indication: DRUG USE FOR UNKNOWN INDICATION

REACTIONS (6)
  - ANOREXIA [None]
  - ASTHENIA [None]
  - DEMENTIA WITH LEWY BODIES [None]
  - DIARRHOEA [None]
  - GENERAL PHYSICAL HEALTH DETERIORATION [None]
  - RENAL IMPAIRMENT [None]
